FAERS Safety Report 18566191 (Version 2)
Quarter: 2020Q4

REPORT INFORMATION
  Report Type: Report from Study
  Country: JP (occurrence: JP)
  Receive Date: 20201201
  Receipt Date: 20201228
  Transmission Date: 20210114
  Serious: Yes (Hospitalization)
  Sender: FDA-Public Use
  Company Number: JP-EISAI MEDICAL RESEARCH-EC-2020-084445

PATIENT
  Age: 42 Year
  Sex: Female
  Weight: 70 kg

DRUGS (3)
  1. ERIBULIN [Suspect]
     Active Substance: ERIBULIN
     Indication: HER2 POSITIVE BREAST CANCER
     Dosage: D1, D8
     Route: 041
     Dates: start: 20171129, end: 20180425
  2. TRASTUZUMAB(GENETICAL RECOMBINATION) [Suspect]
     Active Substance: TRASTUZUMAB
     Indication: HER2 POSITIVE BREAST CANCER
     Route: 041
     Dates: start: 20171129
  3. PERTUZUMAB(GENETICAL RECOMBINATION) [Suspect]
     Active Substance: PERTUZUMAB
     Indication: HER2 POSITIVE BREAST CANCER
     Route: 041
     Dates: start: 20171129

REACTIONS (1)
  - Neuralgia [Recovering/Resolving]

NARRATIVE: CASE EVENT DATE: 20180117
